FAERS Safety Report 10065325 (Version 1)
Quarter: 2014Q1

REPORT INFORMATION
  Report Type: Spontaneous
  Country: US (occurrence: None)
  Receive Date: 20140328
  Receipt Date: 20140328
  Transmission Date: 20141002
  Serious: No
  Sender: FDA-Public Use
  Company Number: 1000052198

PATIENT
  Age: 55 Year
  Sex: Female

DRUGS (2)
  1. LINZESS (LINACLOTIDE) (145 MICROGRAM, CAPSULES) [Suspect]
     Indication: CONSTIPATION
     Route: 048
     Dates: start: 20131112
  2. SIMVASTATIN ( SIMVASTATIN) (SIMVASTATIN) [Concomitant]

REACTIONS (5)
  - Burning sensation [None]
  - Lymphadenopathy [None]
  - Ear infection [None]
  - Dysphagia [None]
  - Dyspnoea [None]
